FAERS Safety Report 5643306-0 (Version None)
Quarter: 2008Q1

REPORT INFORMATION
  Report Type: 
  Country: None (occurrence: None)
  Receive Date: 20080131
  Receipt Date: 20071217
  Transmission Date: 20080703
  Serious: Yes (Other)
  Sender: FDA-Public Use
  Company Number: 163-21880-07121018

PATIENT
  Age: 67 Year
  Sex: Female

DRUGS (3)
  1. REVLIMID [Suspect]
     Indication: MULTIPLE MYELOMA
     Dosage: 25 MG, DAILY 21/28DAYS, ORAL
     Route: 048
     Dates: start: 20070826
  2. ASPIRIN [Concomitant]
  3. DEXAMETHASONE [Concomitant]

REACTIONS (1)
  - PHLEBITIS [None]
